FAERS Safety Report 5356543-X (Version None)
Quarter: 2007Q2

REPORT INFORMATION
  Report Type: 
  Country: None (occurrence: None)
  Receive Date: 20070529
  Receipt Date: 20070305
  Transmission Date: 20071010
  Serious: Yes (Other)
  Sender: FDA-Public Use
  Company Number: 2007017140

PATIENT
  Sex: Female

DRUGS (4)
  1. EXUBERA [Suspect]
     Dosage: 9 MG (3 MG, 3 IN 1 D)
     Dates: start: 20070303
  2. LANTUS [Concomitant]
  3. METFORMIN (METFORMIN) [Concomitant]
  4. ACTOS [Concomitant]

REACTIONS (1)
  - BLOOD GLUCOSE INCREASED [None]
